FAERS Safety Report 25447532 (Version 2)
Quarter: 2025Q4

REPORT INFORMATION
  Report Type: Report from Study
  Country: CA (occurrence: CA)
  Receive Date: 20250617
  Receipt Date: 20251223
  Transmission Date: 20260117
  Serious: No
  Sender: JOHNSON AND JOHNSON
  Company Number: CA-JNJFOC-20240628261

PATIENT
  Age: 55 Year
  Sex: Male

DRUGS (3)
  1. TREMFYA [Suspect]
     Active Substance: GUSELKUMAB
     Indication: Psoriasis
     Dosage: 100 MG
     Dates: start: 20220922, end: 20250619
  2. TREMFYA [Suspect]
     Active Substance: GUSELKUMAB
     Dosage: 100 MG
     Dates: start: 20220922, end: 20241029
  3. TREMFYA [Suspect]
     Active Substance: GUSELKUMAB
     Dosage: 100 MG
     Dates: start: 20220922, end: 20250501

REACTIONS (1)
  - Hepatic enzyme increased [Unknown]

NARRATIVE: CASE EVENT DATE: 20240603
